FAERS Safety Report 4519226-1 (Version None)
Quarter: 2004Q4

REPORT INFORMATION
  Report Type: 
  Country: None (occurrence: None)
  Receive Date: 20041206
  Receipt Date: 20031204
  Transmission Date: 20050328
  Serious: No
  Sender: FDA-Public Use
  Company Number: US-BRISTOL-MYERS SQUIBB COMPANY-12451878

PATIENT
  Age: 44 Year
  Sex: Male
  Weight: 68 kg

DRUGS (12)
  1. VIDEX EC [Suspect]
     Indication: HIV INFECTION
     Route: 048
     Dates: start: 20020101, end: 20031204
  2. VIREAD [Concomitant]
  3. ZIAGEN [Concomitant]
  4. EPIVIR [Concomitant]
  5. NEURONTIN [Concomitant]
  6. METHADONE [Concomitant]
  7. HYDROCORTISONE [Concomitant]
  8. NAPROSYN [Concomitant]
  9. HYDROCHLOROTHIAZIDE [Concomitant]
  10. MULTI-VITAMIN [Concomitant]
  11. QUININE SULFATE [Concomitant]
  12. PREVACID [Concomitant]

REACTIONS (7)
  - DECREASED APPETITE [None]
  - DIZZINESS [None]
  - DRY MOUTH [None]
  - JOINT SWELLING [None]
  - NAUSEA [None]
  - PAIN [None]
  - THIRST [None]
